FAERS Safety Report 9725633 (Version 1)
Quarter: 2013Q4

REPORT INFORMATION
  Report Type: Spontaneous
  Country: US (occurrence: None)
  Receive Date: 20131202
  Receipt Date: 20131202
  Transmission Date: 20140711
  Serious: Yes (Disabling)
  Sender: FDA-Public Use
  Company Number: None

PATIENT
  Age: 56 Year
  Sex: Male
  Weight: 74.84 kg

DRUGS (1)
  1. ALBUTEROL SULFATE [Suspect]
     Indication: BRONCHITIS
     Route: 055
     Dates: start: 20130926, end: 20131023

REACTIONS (4)
  - Dyspnoea [None]
  - Condition aggravated [None]
  - Overdose [None]
  - Product quality issue [None]
